FAERS Safety Report 6361540-1 (Version None)
Quarter: 2009Q3

REPORT INFORMATION
  Report Type: 
  Country: None (occurrence: None)
  Receive Date: 20090918
  Receipt Date: 20090910
  Transmission Date: 20100115
  Serious: Yes (Other)
  Sender: FDA-Public Use
  Company Number: BR-ASTRAZENECA-2009SE12735

PATIENT
  Age: 72 Year
  Sex: Male
  Weight: 71 kg

DRUGS (1)
  1. SYMBICORT TUBUHALER [Suspect]
     Indication: ASTHMA
     Dosage: 320/9 MCG
     Route: 055
     Dates: start: 20060101

REACTIONS (10)
  - ABDOMINAL DISTENSION [None]
  - EAR PRURITUS [None]
  - EYE PRURITUS [None]
  - PNEUMONIA [None]
  - PROSTATE CANCER [None]
  - PROSTATIC SPECIFIC ANTIGEN INCREASED [None]
  - RASH [None]
  - SWELLING FACE [None]
  - TREMOR [None]
  - WEIGHT INCREASED [None]
